FAERS Safety Report 5513228-4 (Version None)
Quarter: 2007Q4

REPORT INFORMATION
  Report Type: 
  Country: None (occurrence: None)
  Receive Date: 20071108
  Receipt Date: 20071102
  Transmission Date: 20080405
  Serious: Yes (Death, Life-Threatening, Hospitalization)
  Sender: FDA-Public Use
  Company Number: 062-C5013-07060825

PATIENT
  Age: 68 Year
  Sex: Male
  Weight: 72 kg

DRUGS (13)
  1. CC-5013 (LENALIDOMIDE) (CAPSULES) [Suspect]
     Indication: CHRONIC LYMPHOCYTIC LEUKAEMIA
     Dosage: 10 OR 25 MG, DAILY, ORAL
     Route: 048
     Dates: start: 20070611, end: 20070613
  2. SALBUTAMOL (SALBUTAMOL) [Concomitant]
  3. ALLOPURINOL [Concomitant]
  4. ATROVENT [Concomitant]
  5. EUNERPAN (MELPERONE HYDROCHLORIDE) [Concomitant]
  6. MORADORM (MORADORM) [Concomitant]
  7. PULMICORT [Concomitant]
  8. BACTRIM DS [Concomitant]
  9. OMEPRAZOLE [Concomitant]
  10. TOREM (TORASEMIDE) [Concomitant]
  11. DURAGESIC-100 [Concomitant]
  12. BERODUAL (DUOVENT) [Concomitant]
  13. PASPERTIN (METOCLOPRAMIDE HYDROCHLORIDE) [Concomitant]

REACTIONS (6)
  - ANAEMIA [None]
  - BONE PAIN [None]
  - LOW CARDIAC OUTPUT SYNDROME [None]
  - RENAL FAILURE [None]
  - TUMOUR FLARE [None]
  - TUMOUR LYSIS SYNDROME [None]
